FAERS Safety Report 6018971-9 (Version None)
Quarter: 2008Q4

REPORT INFORMATION
  Report Type: 
  Country: None (occurrence: None)
  Receive Date: 20081221
  Receipt Date: 20081221
  Transmission Date: 20090506
  Serious: Yes (Disabling)
  Sender: FDA-Public Use
  Company Number: None

PATIENT
  Sex: Female
  Weight: 68.0396 kg

DRUGS (1)
  1. REBIF [Suspect]
     Indication: MULTIPLE SCLEROSIS
     Dosage: 1 PREFILLED SYRINGE 1 TIME PER DAY SQ
     Route: 058
     Dates: start: 20080424, end: 20081204

REACTIONS (3)
  - DRY SKIN [None]
  - INJECTION SITE URTICARIA [None]
  - PRURITUS [None]
